FAERS Safety Report 9819198 (Version 2)
Quarter: 2014Q1

REPORT INFORMATION
  Report Type: Spontaneous
  Country: US (occurrence: US)
  Receive Date: 20140115
  Receipt Date: 20140115
  Transmission Date: 20141002
  Serious: Yes (Other)
  Sender: FDA-Public Use
  Company Number: US-GE HEALTHCARE MEDICAL DIAGNOSTICS-OSCN-PR-1102S-0087

PATIENT
  Sex: Female

DRUGS (17)
  1. OMNISCAN [Suspect]
     Indication: PRODUCT USED FOR UNKNOWN INDICATION
     Route: 042
  2. OMNISCAN [Suspect]
     Route: 042
  3. OMNISCAN [Suspect]
     Route: 042
  4. OMNISCAN [Suspect]
     Route: 042
  5. OMNISCAN [Suspect]
     Route: 042
  6. GADOLINIUM (UNSPECIFIED) [Suspect]
     Indication: LIVER FUNCTION TEST ABNORMAL
     Route: 042
     Dates: start: 20041001, end: 20041001
  7. GADOLINIUM (UNSPECIFIED) [Suspect]
     Indication: LIVER ABSCESS
     Route: 042
     Dates: start: 20041007, end: 20041007
  8. GADOLINIUM (UNSPECIFIED) [Suspect]
     Indication: ARTHRALGIA
     Route: 042
     Dates: start: 20041118, end: 20041118
  9. GADOLINIUM (UNSPECIFIED) [Suspect]
     Indication: MENTAL STATUS CHANGES
     Route: 042
     Dates: start: 20050523, end: 20050523
  10. GADOLINIUM (UNSPECIFIED) [Suspect]
     Indication: HEPATIC LESION
     Dates: start: 20050626, end: 20050626
  11. GADOLINIUM (UNSPECIFIED) [Suspect]
     Route: 042
     Dates: start: 20041007, end: 20041007
  12. MAGNEVIST [Suspect]
     Indication: ABDOMINAL PAIN
     Route: 042
     Dates: start: 20050509, end: 20050509
  13. MAGNEVIST [Suspect]
     Indication: HEPATIC FIBROSIS
     Dates: start: 20070905
  14. NEORAL [Concomitant]
  15. OXYCONTIN [Concomitant]
  16. CELLCEPT [Concomitant]
  17. PREDNISONE [Concomitant]

REACTIONS (1)
  - Nephrogenic systemic fibrosis [Not Recovered/Not Resolved]
